FAERS Safety Report 22706742 (Version 5)
Quarter: 2023Q4

REPORT INFORMATION
  Report Type: Report from Study
  Country: US (occurrence: US)
  Receive Date: 20230714
  Receipt Date: 20231011
  Transmission Date: 20240110
  Serious: Yes (Other)
  Sender: FDA-Public Use
  Company Number: US-HORIZON THERAPEUTICS-HZN-2023-005307

PATIENT

DRUGS (2)
  1. TEPEZZA [Suspect]
     Active Substance: TEPROTUMUMAB-TRBW
     Indication: Endocrine ophthalmopathy
     Dosage: FIRST INFUSION
     Route: 042
     Dates: start: 20230710
  2. TEPEZZA [Suspect]
     Active Substance: TEPROTUMUMAB-TRBW
     Dosage: FOURTH INFUSION
     Route: 042
     Dates: start: 2023

REACTIONS (10)
  - Neuropathy peripheral [Unknown]
  - Paraesthesia [Unknown]
  - Blood pressure abnormal [Unknown]
  - Fatigue [Unknown]
  - Muscle spasms [Unknown]
  - Drug ineffective [Unknown]
  - Hypoacusis [Unknown]
  - Blood pressure increased [Unknown]
  - Anxiety [Unknown]
  - Depressed mood [Unknown]

NARRATIVE: CASE EVENT DATE: 20230101
